FAERS Safety Report 8430763-X (Version None)
Quarter: 2012Q2

REPORT INFORMATION
  Report Type: 
  Country: None (occurrence: None)
  Receive Date: 20120612
  Receipt Date: 20120531
  Transmission Date: 20120825
  Serious: Yes (Hospitalization, Other)
  Sender: FDA-Public Use
  Company Number: US-ELI_LILLY_AND_COMPANY-US201204009553

PATIENT
  Sex: Female

DRUGS (21)
  1. COLACE [Concomitant]
     Dosage: UNK, UNKNOWN
  2. PROVENTIL-HFA [Concomitant]
     Dosage: UNK, UNKNOWN
  3. FORTEO [Suspect]
     Dosage: 20 UG, QD
  4. OMEPRAZOLE [Concomitant]
     Dosage: UNK, UNKNOWN
  5. FISH OIL [Concomitant]
     Dosage: UNK, UNKNOWN
  6. SLOW FE [Concomitant]
     Dosage: UNK, UNKNOWN
  7. CALCIUM CITRATE [Concomitant]
     Dosage: UNK
  8. LEVOTHYROXINE SODIUM [Concomitant]
     Dosage: UNK, UNKNOWN
  9. IPRATROPIUM BROMIDE [Concomitant]
     Dosage: UNK, UNKNOWN
  10. VITAMIN B-12 [Concomitant]
     Dosage: UNK, UNKNOWN
  11. AMLODIPINE [Concomitant]
     Dosage: UNK
  12. PRAVASTATIN [Concomitant]
     Dosage: UNK
  13. PREDNISONE [Concomitant]
     Dosage: UNK, UNKNOWN
  14. HYDROCODONE [Concomitant]
     Dosage: UNK, UNKNOWN
  15. CIPROFLOXACIN [Concomitant]
     Dosage: UNK, UNKNOWN
  16. CALCIUM CARBONATE [Concomitant]
     Dosage: UNK, UNKNOWN
  17. FORTEO [Suspect]
     Indication: OSTEOPOROSIS
     Dosage: 20 UG, QD
     Dates: start: 20120201
  18. HYDROCHLOROTHIAZIDE [Concomitant]
     Dosage: UNK, UNKNOWN
  19. FOLIC ACID [Concomitant]
     Dosage: UNK, UNKNOWN
  20. ASPIRIN [Concomitant]
     Dosage: 81 MG, UNKNOWN
  21. LUNESTA [Concomitant]
     Dosage: UNK, UNKNOWN

REACTIONS (6)
  - SYNCOPE [None]
  - DYSPNOEA [None]
  - ASTHENIA [None]
  - NAUSEA [None]
  - VOMITING [None]
  - MYOCARDIAL INFARCTION [None]
